FAERS Safety Report 19790863 (Version 1)
Quarter: 2021Q3

REPORT INFORMATION
  Report Type: Spontaneous
  Country: US (occurrence: US)
  Receive Date: 20210906
  Receipt Date: 20210906
  Transmission Date: 20211014
  Serious: Yes (Life-Threatening, Hospitalization, Other)
  Sender: FDA-Public Use
  Company Number: US-PURACAP-US-2021EPCLIT00961

PATIENT
  Sex: Female

DRUGS (2)
  1. CALCIUM [Interacting]
     Active Substance: CALCIUM
     Indication: HYPOCALCAEMIA
     Route: 042
  2. IBUPROFEN. [Suspect]
     Active Substance: IBUPROFEN
     Indication: PRODUCT USED FOR UNKNOWN INDICATION
     Route: 065

REACTIONS (9)
  - Metabolic acidosis [Recovered/Resolved]
  - Hypocalcaemia [Recovered/Resolved]
  - Unresponsive to stimuli [Recovered/Resolved]
  - Toxicity to various agents [Recovered/Resolved]
  - Hypothermia [Recovered/Resolved]
  - Respiratory distress [Recovered/Resolved]
  - Intentional overdose [Unknown]
  - Electrocardiogram ST segment elevation [Recovered/Resolved]
  - Electrocardiogram QT prolonged [Recovered/Resolved]
